FAERS Safety Report 14932550 (Version 1)
Quarter: 2018Q2

REPORT INFORMATION
  Report Type: Report from Study
  Country: US (occurrence: US)
  Receive Date: 20180524
  Receipt Date: 20180524
  Transmission Date: 20180711
  Serious: No
  Sender: FDA-Public Use
  Company Number: US-ACADIA PHARMACEUTICALS INC.-ACA-2018-008215

PATIENT
  Age: 89 Year
  Sex: Male

DRUGS (3)
  1. NUPLAZID [Suspect]
     Active Substance: PIMAVANSERIN TARTRATE
     Indication: HALLUCINATION
     Dosage: 34 MG, QD
     Route: 065
     Dates: start: 20180322, end: 20180325
  2. NUPLAZID [Suspect]
     Active Substance: PIMAVANSERIN TARTRATE
     Indication: PARKINSON^S DISEASE PSYCHOSIS
  3. NUPLAZID [Suspect]
     Active Substance: PIMAVANSERIN TARTRATE
     Indication: DELUSION

REACTIONS (8)
  - Somnolence [Unknown]
  - Lethargy [Unknown]
  - Gait disturbance [Unknown]
  - Insomnia [Not Recovered/Not Resolved]
  - Delusion [Unknown]
  - Confusional state [Not Recovered/Not Resolved]
  - Abnormal behaviour [Unknown]
  - Hallucination [Unknown]

NARRATIVE: CASE EVENT DATE: 20180326
